FAERS Safety Report 10003633 (Version 2)
Quarter: 2014Q1

REPORT INFORMATION
  Report Type: Spontaneous
  Country: US (occurrence: US)
  Receive Date: 20140312
  Receipt Date: 20140312
  Transmission Date: 20141002
  Serious: Yes (Death)
  Sender: FDA-Public Use
  Company Number: US-GE HEALTHCARE MEDICAL DIAGNOSTICS-OSCN-PR-1006S-0175

PATIENT
  Age: 70 Year
  Sex: Male
  Weight: 55.39 kg

DRUGS (10)
  1. OMNISCAN [Suspect]
     Indication: CEREBROVASCULAR ACCIDENT
     Route: 042
     Dates: start: 20031122, end: 20031122
  2. OMNISCAN [Suspect]
     Indication: HYPERTENSION
     Route: 042
     Dates: start: 20031123, end: 20031123
  3. OMNISCAN [Suspect]
     Indication: RENAL ARTERY STENOSIS
     Route: 042
     Dates: start: 20050326, end: 20050326
  4. OMNISCAN [Suspect]
     Indication: PAIN IN EXTREMITY
     Route: 042
     Dates: start: 20050428, end: 20050428
  5. OXYCONTIN [Concomitant]
     Indication: PAIN
  6. NEURONTIN [Concomitant]
  7. THALIDOMIDE [Concomitant]
     Indication: NEPHROGENIC SYSTEMIC FIBROSIS
     Dates: start: 20050823
  8. CELEXA [Concomitant]
     Indication: PAIN
  9. INTRAVENOUS IMMUNOGLOBULIN [Concomitant]
     Indication: NEPHROGENIC SYSTEMIC FIBROSIS
     Dates: start: 20050808
  10. OXYCODONE [Concomitant]
     Indication: PAIN

REACTIONS (1)
  - Nephrogenic systemic fibrosis [Fatal]
